FAERS Safety Report 7969910-2 (Version None)
Quarter: 2011Q4

REPORT INFORMATION
  Report Type: 
  Country: None (occurrence: None)
  Receive Date: 20111212
  Receipt Date: 20111205
  Transmission Date: 20120403
  Serious: Yes (Hospitalization)
  Sender: FDA-Public Use
  Company Number: ES-UCBSA-046392

PATIENT
  Age: 56 Year
  Sex: Male
  Weight: 80 kg

DRUGS (2)
  1. KEPPRA [Suspect]
     Indication: STATUS EPILEPTICUS
     Route: 042
     Dates: start: 20110917, end: 20111015
  2. KEPPRA [Suspect]
     Indication: CONVULSION
     Route: 042
     Dates: start: 20110917, end: 20111015

REACTIONS (1)
  - ILEUS PARALYTIC [None]
